FAERS Safety Report 11454713 (Version 1)
Quarter: 2015Q3

REPORT INFORMATION
  Report Type: Spontaneous
  Country: US (occurrence: US)
  Receive Date: 20150831
  Receipt Date: 20150831
  Transmission Date: 20151125
  Serious: Yes (Death)
  Sender: FDA-Public Use
  Company Number: US-LLY01-US_0505116969

PATIENT
  Age: 16 Year
  Sex: Male
  Weight: 77.27 kg

DRUGS (2)
  1. CYMBALTA [Suspect]
     Active Substance: DULOXETINE HYDROCHLORIDE
     Indication: DEPRESSION
     Dosage: 60 MG, DAILY (1/D)
     Route: 048
     Dates: start: 20041126
  2. ZALEPLON. [Concomitant]
     Active Substance: ZALEPLON

REACTIONS (3)
  - Feeling jittery [Recovered/Resolved]
  - Completed suicide [Fatal]
  - Social avoidant behaviour [Not Recovered/Not Resolved]

NARRATIVE: CASE EVENT DATE: 20041204
